FAERS Safety Report 9142286 (Version 2)
Quarter: 2016Q1

REPORT INFORMATION
  Report Type: Spontaneous
  Country: DE (occurrence: DE)
  Receive Date: 20130305
  Receipt Date: 20160210
  Transmission Date: 20160526
  Serious: Yes (Congenital Anomaly, Other)
  Sender: FDA-Public Use
  Company Number: DE-BRISTOL-MYERS SQUIBB COMPANY-17424052

PATIENT
  Sex: Female
  Weight: 1.89 kg

DRUGS (11)
  1. VENLAFAXINE HCL [Suspect]
     Active Substance: VENLAFAXINE HYDROCHLORIDE
     Dosage: 75 MG, QD
     Route: 064
  2. METFORMIN HYDROCHLORIDE. [Suspect]
     Active Substance: METFORMIN HYDROCHLORIDE
     Indication: PRODUCT USED FOR UNKNOWN INDICATION
     Dosage: 1700 MG, QD
     Route: 064
  3. MELPERONE HCL [Suspect]
     Active Substance: MELPERONE HYDROCHLORIDE
     Indication: PRODUCT USED FOR UNKNOWN INDICATION
     Dosage: 200 MG, QD
     Route: 064
     Dates: start: 20111012, end: 20120606
  4. MELPERONE HCL [Suspect]
     Active Substance: MELPERONE HYDROCHLORIDE
     Dosage: 50 MG, QD
     Route: 064
     Dates: start: 20111012, end: 20120606
  5. MELPERONE HCL [Suspect]
     Active Substance: MELPERONE HYDROCHLORIDE
     Dosage: 100 MG, QD
     Route: 064
     Dates: start: 20111012, end: 20120606
  6. FRAGMIN [Concomitant]
     Active Substance: DALTEPARIN SODIUM
     Indication: PRODUCT USED FOR UNKNOWN INDICATION
     Route: 064
  7. FOLIC ACID. [Concomitant]
     Active Substance: FOLIC ACID
     Indication: PRODUCT USED FOR UNKNOWN INDICATION
     Route: 064
  8. VENLAFAXINE HCL [Suspect]
     Active Substance: VENLAFAXINE HYDROCHLORIDE
     Dosage: 37.5 MG, QD
     Route: 064
  9. CLOTRIMAZOLE. [Concomitant]
     Active Substance: CLOTRIMAZOLE
     Indication: PRODUCT USED FOR UNKNOWN INDICATION
     Route: 064
  10. VENLAFAXINE HCL [Suspect]
     Active Substance: VENLAFAXINE HYDROCHLORIDE
     Indication: PRODUCT USED FOR UNKNOWN INDICATION
     Dosage: 300 MG, QD
     Route: 064
     Dates: start: 20111012, end: 20120606
  11. VENLAFAXINE HCL [Suspect]
     Active Substance: VENLAFAXINE HYDROCHLORIDE
     Dosage: 150 MG, QD
     Route: 064

REACTIONS (11)
  - Congenital absence of bile ducts [Unknown]
  - Spine malformation [Not Recovered/Not Resolved]
  - Congenital uterine anomaly [Not Recovered/Not Resolved]
  - Foetal exposure during pregnancy [Unknown]
  - Fallot^s tetralogy [Recovered/Resolved with Sequelae]
  - Right aortic arch [Recovered/Resolved with Sequelae]
  - Premature baby [Unknown]
  - Persistent cloaca [Not Recovered/Not Resolved]
  - Atrial septal defect [Recovered/Resolved with Sequelae]
  - Persistent left superior vena cava [Recovered/Resolved with Sequelae]
  - Anal atresia [Not Recovered/Not Resolved]

NARRATIVE: CASE EVENT DATE: 20120606
